FAERS Safety Report 8131713-6 (Version None)
Quarter: 2012Q1

REPORT INFORMATION
  Report Type: 
  Country: None (occurrence: None)
  Receive Date: 20120213
  Receipt Date: 20120203
  Transmission Date: 20120608
  Serious: Yes (Hospitalization, Other)
  Sender: FDA-Public Use
  Company Number: US-ASTELLAS-2011US002501

PATIENT
  Age: 55 Year
  Sex: Female
  Weight: 53 kg

DRUGS (12)
  1. BIOTENE [Concomitant]
     Indication: PRODUCT USED FOR UNKNOWN INDICATION
     Dosage: UNK
     Route: 065
  2. ERLOTINIB HYDROCHLORIDE [Suspect]
     Indication: NON-SMALL CELL LUNG CANCER
     Dosage: 150 MG, UID/QD
     Route: 048
     Dates: start: 20110503, end: 20110514
  3. ERLOTINIB HYDROCHLORIDE [Suspect]
     Dosage: UNK
     Route: 048
     Dates: start: 20110525
  4. NAPROXEN (ALEVE) [Concomitant]
     Indication: PRODUCT USED FOR UNKNOWN INDICATION
     Dosage: UNK
     Route: 065
  5. ERLOTINIB HYDROCHLORIDE [Suspect]
     Dosage: 50 MG, UID/QD
     Route: 048
     Dates: start: 20120124
  6. MK-2206 [Suspect]
     Indication: NON-SMALL CELL LUNG CANCER
     Dosage: 45 MG, QOD
     Route: 048
     Dates: start: 20110503, end: 20110513
  7. MK-2206 [Suspect]
     Dosage: 45 MG, QOD
     Route: 048
     Dates: end: 20120110
  8. MK-2206 [Suspect]
     Dosage: 15 MG, QOD
     Route: 048
     Dates: start: 20120124
  9. MK-2206 [Suspect]
     Dosage: UNK
     Route: 048
     Dates: start: 20110525
  10. DOXYCYCLINE [Concomitant]
     Indication: PRODUCT USED FOR UNKNOWN INDICATION
     Dosage: UNK
     Route: 065
  11. ERLOTINIB HYDROCHLORIDE [Suspect]
     Dosage: 150 MG, UID/QD
     Route: 048
     Dates: end: 20120110
  12. ULTRAM [Concomitant]
     Indication: PRODUCT USED FOR UNKNOWN INDICATION
     Dosage: UNK
     Route: 065

REACTIONS (6)
  - LEUKOPENIA [None]
  - STOMATITIS [None]
  - PYREXIA [None]
  - RASH MACULO-PAPULAR [None]
  - LYMPHOCYTE COUNT DECREASED [None]
  - NEUTROPHIL COUNT DECREASED [None]
